FAERS Safety Report 7284750-8 (Version None)
Quarter: 2011Q1

REPORT INFORMATION
  Report Type: 
  Country: None (occurrence: None)
  Receive Date: 20110210
  Receipt Date: 20110127
  Transmission Date: 20110831
  Serious: Yes (Hospitalization)
  Sender: FDA-Public Use
  Company Number: 2009BI032340

PATIENT
  Age: 36 Year
  Sex: Female
  Weight: 43 kg

DRUGS (2)
  1. CIPRO [Concomitant]
  2. TYSABRI [Suspect]
     Indication: MULTIPLE SCLEROSIS
     Route: 042
     Dates: start: 20080320

REACTIONS (8)
  - COORDINATION ABNORMAL [None]
  - HYPOAESTHESIA [None]
  - DRUG INEFFECTIVE [None]
  - MULTIPLE SCLEROSIS [None]
  - PARAESTHESIA [None]
  - TREMOR [None]
  - NERVOUS SYSTEM DISORDER [None]
  - MULTIPLE SCLEROSIS RELAPSE [None]
